FAERS Safety Report 6044029-9 (Version None)
Quarter: 2009Q1

REPORT INFORMATION
  Report Type: 
  Country: None (occurrence: None)
  Receive Date: 20090120
  Receipt Date: 20090109
  Transmission Date: 20090719
  Serious: Yes (Other)
  Sender: FDA-Public Use
  Company Number: US-AVENTIS-200910461GDDC

PATIENT
  Sex: Female

DRUGS (1)
  1. TAXOTERE [Suspect]
     Route: 042

REACTIONS (2)
  - BLEPHAROSPASM [None]
  - DRY EYE [None]
